FAERS Safety Report 6674329-0 (Version None)
Quarter: 2010Q2

REPORT INFORMATION
  Report Type: 
  Country: None (occurrence: None)
  Receive Date: 20100409
  Receipt Date: 20100331
  Transmission Date: 20101027
  Serious: Yes (Hospitalization)
  Sender: FDA-Public Use
  Company Number: GR-JNJFOC-20100400009

PATIENT
  Age: 72 Year

DRUGS (1)
  1. LEUSTATIN [Suspect]
     Indication: PROLYMPHOCYTIC LEUKAEMIA
     Route: 065

REACTIONS (1)
  - COLON CANCER [None]
